FAERS Safety Report 18467650 (Version 3)
Quarter: 2020Q4

REPORT INFORMATION
  Report Type: Report from Study
  Country: AU (occurrence: AU)
  Receive Date: 20201105
  Receipt Date: 20201222
  Transmission Date: 20210114
  Serious: Yes (Hospitalization, Other)
  Sender: FDA-Public Use
  Company Number: AU-AMGEN-AUSSL2020179264

PATIENT
  Age: 68 Year
  Sex: Male

DRUGS (2)
  1. KYPROLIS [Suspect]
     Active Substance: CARFILZOMIB
     Indication: PLASMA CELL MYELOMA
     Dosage: 56 MILLIGRAM/SQ. METER, GIVEN ON DAY1,2,8,9,15 +16, 28 DAYS PER CYCLE
     Route: 042
     Dates: start: 20200623, end: 20201103
  2. KYPROLIS [Suspect]
     Active Substance: CARFILZOMIB
     Dosage: 56 MILLIGRAM/SQ. METER, GIVEN ON DAY1,2,8,9,15 +16, 28 DAYS PER CYCLE
     Route: 042
     Dates: start: 202011, end: 20201217

REACTIONS (6)
  - Tachycardia [Not Recovered/Not Resolved]
  - Fall [Recovering/Resolving]
  - Urinary incontinence [Not Recovered/Not Resolved]
  - Palpitations [Recovering/Resolving]
  - Pyrexia [Not Recovered/Not Resolved]
  - Plasma cell myeloma [Unknown]

NARRATIVE: CASE EVENT DATE: 20201103
